FAERS Safety Report 23385383 (Version 1)
Quarter: 2024Q1

REPORT INFORMATION
  Report Type: Spontaneous
  Country: US (occurrence: US)
  Receive Date: 20240110
  Receipt Date: 20240110
  Transmission Date: 20240410
  Serious: No
  Sender: FDA-Public Use
  Company Number: US-SA-SAC20240108000918

PATIENT
  Age: 46 Year
  Sex: Female
  Weight: 61.2 kg

DRUGS (6)
  1. DUPIXENT [Suspect]
     Active Substance: DUPILUMAB
     Indication: Dermatitis allergic
     Dosage: 300 MG QOW
     Route: 058
     Dates: start: 20230301
  2. DUPIXENT [Suspect]
     Active Substance: DUPILUMAB
     Indication: Dermatitis atopic
  3. DROSPIRENONE [Concomitant]
     Active Substance: DROSPIRENONE
  4. BIOTIN [Concomitant]
     Active Substance: BIOTIN
  5. CITRACAL + D3 [Concomitant]
  6. VITAMINS [Concomitant]
     Active Substance: VITAMINS

REACTIONS (3)
  - COVID-19 [Unknown]
  - Cough [Unknown]
  - Fatigue [Unknown]
